FAERS Safety Report 7997650-2 (Version None)
Quarter: 2011Q4

REPORT INFORMATION
  Report Type: 
  Country: None (occurrence: None)
  Receive Date: 20111221
  Receipt Date: 20111207
  Transmission Date: 20120403
  Serious: Yes (Other)
  Sender: FDA-Public Use
  Company Number: US-ROCHE-1020805

PATIENT

DRUGS (3)
  1. MABTHERA [Suspect]
     Indication: CHRONIC LYMPHOCYTIC LEUKAEMIA
     Dosage: 375-500 MG/M2 ON DAY 3 OF EACH CYCLE OF 28 DAYS
  2. FLUDARABINE PHOSPHATE [Suspect]
     Indication: CHRONIC LYMPHOCYTIC LEUKAEMIA
     Dosage: DAY 2 AND 3 OF EACH CYCLE OF 28 DAYS
  3. BENDAMUSTINE [Suspect]
     Indication: CHRONIC LYMPHOCYTIC LEUKAEMIA
     Dosage: 20, 30, 40 OR 50 MG/M2 ON D1,2,3

REACTIONS (6)
  - VOMITING [None]
  - DEHYDRATION [None]
  - NEUTROPENIA [None]
  - NAUSEA [None]
  - THROMBOCYTOPENIA [None]
  - SEPSIS [None]
